FAERS Safety Report 6174463-8 (Version None)
Quarter: 2009Q2

REPORT INFORMATION
  Report Type: 
  Country: None (occurrence: None)
  Receive Date: 20090430
  Receipt Date: 20080617
  Transmission Date: 20091009
  Serious: No
  Sender: FDA-Public Use
  Company Number: US-ASTRAZENECA-2008UW12190

PATIENT
  Age: 55 Year
  Sex: Female

DRUGS (3)
  1. NEXIUM [Suspect]
     Indication: GASTROOESOPHAGEAL REFLUX DISEASE
     Route: 048
  2. EXFORGE [Concomitant]
  3. TOPROL-XL [Concomitant]
     Route: 048

REACTIONS (2)
  - ERUCTATION [None]
  - FOAMING AT MOUTH [None]
